FAERS Safety Report 19998191 (Version 1)
Quarter: 2021Q4

REPORT INFORMATION
  Report Type: Spontaneous
  Country: AT (occurrence: AT)
  Receive Date: 20211026
  Receipt Date: 20211026
  Transmission Date: 20220303
  Serious: Yes (Life-Threatening, Other)
  Sender: FDA-Public Use
  Company Number: AT-SA-2021SA231681

PATIENT
  Age: 37 Year
  Sex: Male

DRUGS (16)
  1. TOPIRAMATE [Interacting]
     Active Substance: TOPIRAMATE
     Indication: Schizophrenia
     Dosage: 150 MILLIGRAM (150 MG)
  2. TOPIRAMATE [Interacting]
     Active Substance: TOPIRAMATE
     Dosage: 200 MILLIGRAM (200 MG)
  3. VALPROATE SODIUM [Interacting]
     Active Substance: VALPROATE SODIUM
     Indication: Product used for unknown indication
     Dosage: 1000 MILLIGRAM (1000 MG)
  4. VALPROATE SODIUM [Interacting]
     Active Substance: VALPROATE SODIUM
     Dosage: 500 MILLIGRAM (500 MG)
  5. TRAZODONE [Concomitant]
     Active Substance: TRAZODONE HYDROCHLORIDE
     Indication: Schizophrenia
     Dosage: 300 MILLIGRAM (300 MG)
  6. QUETIAPINE [Concomitant]
     Active Substance: QUETIAPINE
     Indication: Schizophrenia
     Dosage: 800 MILLIGRAM (800 MG)
  7. QUETIAPINE [Concomitant]
     Active Substance: QUETIAPINE
     Dosage: 1600 MILLIGRAM (1600 MG)
  8. CLONAZEPAM [Concomitant]
     Active Substance: CLONAZEPAM
     Indication: Schizophrenia
     Dosage: 6 MILLIGRAM, QD (6 MG, QD)
  9. CLONAZEPAM [Concomitant]
     Active Substance: CLONAZEPAM
     Dosage: 5 MILLIGRAM, QD (5 MG, QD)
  10. ZIPRASIDONE [Concomitant]
     Active Substance: ZIPRASIDONE
     Indication: Schizophrenia
     Dosage: 160 MILLIGRAM (160 MG)
  11. PREGABALIN [Concomitant]
     Active Substance: PREGABALIN
     Indication: Schizophrenia
     Dosage: 300 MILLIGRAM (300 MG)
  12. PREGABALIN [Concomitant]
     Active Substance: PREGABALIN
     Dosage: 375 MILLIGRAM (375 MG)
  13. ESCITALOPRAM [Concomitant]
     Active Substance: ESCITALOPRAM OXALATE
     Indication: Schizophrenia
     Dosage: 20 MILLIGRAM (20 MG)
  14. ARIPIPRAZOLE [Concomitant]
     Active Substance: ARIPIPRAZOLE
     Indication: Schizophrenia
     Dosage: 50 MILLIGRAM (50 MG)
  15. ARIPIPRAZOLE [Concomitant]
     Active Substance: ARIPIPRAZOLE
     Dosage: 20 MILLIGRAM (20 MG)
  16. AMISULPRIDE [Concomitant]
     Active Substance: AMISULPRIDE
     Indication: Schizophrenia
     Dosage: 600 MILLIGRAM (600 MG)

REACTIONS (7)
  - Toxic encephalopathy [Recovering/Resolving]
  - Hyperammonaemic encephalopathy [Recovering/Resolving]
  - Depressed level of consciousness [Recovering/Resolving]
  - Disorientation [Recovering/Resolving]
  - Drug interaction [Recovering/Resolving]
  - Psychomotor retardation [Recovering/Resolving]
  - Disturbance in attention [Recovering/Resolving]
